FAERS Safety Report 16645199 (Version 2)
Quarter: 2019Q3

REPORT INFORMATION
  Report Type: Spontaneous
  Country: DE (occurrence: DE)
  Receive Date: 20190729
  Receipt Date: 20190729
  Transmission Date: 20191004
  Serious: Yes (Other)
  Sender: FDA-Public Use
  Company Number: PHHY2019DE175260

PATIENT
  Age: 77 Year
  Sex: Male

DRUGS (1)
  1. DICLO SL 1A PHARMA [Suspect]
     Active Substance: DICLOFENAC SODIUM
     Indication: PROSTATITIS
     Dosage: UNK
     Route: 065

REACTIONS (2)
  - Product use in unapproved indication [Unknown]
  - Blood pressure increased [Unknown]
